FAERS Safety Report 4771506-0 (Version None)
Quarter: 2005Q3

REPORT INFORMATION
  Report Type: 
  Country: None (occurrence: None)
  Receive Date: 20050914
  Receipt Date: 20050914
  Transmission Date: 20060218
  Serious: No
  Sender: FDA-Public Use
  Company Number: None

PATIENT
  Age: 55 Year
  Sex: Male

DRUGS (1)
  1. OXYCODONE HCL [Suspect]
     Indication: PAIN
     Dosage: 1 TAB Q 6 HRS PO PRN FOR PAIN
     Route: 048
     Dates: start: 20050407, end: 20050913

REACTIONS (4)
  - HYPERHIDROSIS [None]
  - HYPERSENSITIVITY [None]
  - RASH PRURITIC [None]
  - SWELLING FACE [None]
